FAERS Safety Report 13873373 (Version 1)
Quarter: 2017Q3

REPORT INFORMATION
  Report Type: Spontaneous
  Country: US (occurrence: US)
  Receive Date: 20170816
  Receipt Date: 20170816
  Transmission Date: 20171127
  Serious: No
  Sender: FDA-Public Use
  Company Number: US-MALLINCKRODT-T201701851

PATIENT
  Age: 44 Year
  Sex: Male
  Weight: 86 kg

DRUGS (5)
  1. LYRICA [Concomitant]
     Active Substance: PREGABALIN
  2. ROXICODONE [Suspect]
     Active Substance: OXYCODONE HYDROCHLORIDE
     Dosage: 45 MG (3, 15MG TABS), QD
     Route: 048
     Dates: end: 2016
  3. ROXICODONE [Suspect]
     Active Substance: OXYCODONE HYDROCHLORIDE
     Dosage: 30 MG
     Route: 048
     Dates: start: 201010
  4. ROXICODONE [Suspect]
     Active Substance: OXYCODONE HYDROCHLORIDE
     Dosage: UNK (^TAPERED DOWN^ FROM 30 MG)
     Route: 048
     Dates: start: 2013
  5. ROXICODONE [Suspect]
     Active Substance: OXYCODONE HYDROCHLORIDE
     Dosage: 60 MG (4, 15MG TABS), QD
     Route: 048
     Dates: start: 2016

REACTIONS (3)
  - Drug ineffective [Unknown]
  - Drug tolerance increased [Unknown]
  - Intentional product use issue [Recovered/Resolved]

NARRATIVE: CASE EVENT DATE: 201410
